FAERS Safety Report 7035813-3 (Version None)
Quarter: 2010Q4

REPORT INFORMATION
  Report Type: 
  Country: None (occurrence: None)
  Receive Date: 20101008
  Receipt Date: 20101001
  Transmission Date: 20110411
  Serious: Yes (Other)
  Sender: FDA-Public Use
  Company Number: IT-AMGEN-QUU437293

PATIENT
  Sex: Male

DRUGS (4)
  1. ARANESP [Suspect]
     Indication: DIALYSIS
     Route: 058
     Dates: start: 20100212, end: 20100910
  2. EPREX [Suspect]
     Route: 058
     Dates: start: 20050501, end: 20100111
  3. ALLOPURINOL [Concomitant]
     Dates: start: 20090701, end: 20100601
  4. RED BLOOD CELLS [Concomitant]
     Dates: start: 20090901

REACTIONS (5)
  - ANAEMIA [None]
  - AORTIC CALCIFICATION [None]
  - BRONCHOPNEUMONIA [None]
  - CARDIAC DISORDER [None]
  - PLEURAL FIBROSIS [None]
